FAERS Safety Report 8350495-6 (Version None)
Quarter: 2012Q2

REPORT INFORMATION
  Report Type: 
  Country: None (occurrence: None)
  Receive Date: 20120510
  Receipt Date: 20120430
  Transmission Date: 20120825
  Serious: Yes (Death, Other)
  Sender: FDA-Public Use
  Company Number: CN-JNJFOC-20120401406

PATIENT

DRUGS (17)
  1. CYTARABINE [Suspect]
     Indication: ACUTE LYMPHOCYTIC LEUKAEMIA
     Route: 042
  2. MESNA [Suspect]
     Indication: ACUTE MYELOID LEUKAEMIA
     Route: 042
  3. LEUCOVORIN CALCIUM [Concomitant]
     Route: 065
  4. METHOTREXATE [Suspect]
     Indication: NON-HODGKIN'S LYMPHOMA
     Route: 042
  5. VINCRISTINE [Suspect]
     Indication: NON-HODGKIN'S LYMPHOMA
     Route: 042
  6. VINCRISTINE [Suspect]
     Indication: ACUTE LYMPHOCYTIC LEUKAEMIA
     Route: 042
  7. METHOTREXATE [Suspect]
     Indication: ACUTE LYMPHOCYTIC LEUKAEMIA
     Route: 042
  8. MESNA [Suspect]
     Indication: NON-HODGKIN'S LYMPHOMA
     Route: 042
  9. VINDESINE [Suspect]
     Indication: ACUTE LYMPHOCYTIC LEUKAEMIA
     Route: 042
  10. VINDESINE [Suspect]
     Indication: NON-HODGKIN'S LYMPHOMA
     Route: 042
  11. DOXORUBICIN HCL [Suspect]
     Indication: NON-HODGKIN'S LYMPHOMA
     Route: 042
  12. CYCLOPHOSPHAMIDE [Suspect]
     Indication: NON-HODGKIN'S LYMPHOMA
     Route: 042
  13. CYCLOPHOSPHAMIDE [Suspect]
     Indication: ACUTE LYMPHOCYTIC LEUKAEMIA
     Route: 042
  14. CYTARABINE [Suspect]
     Indication: NON-HODGKIN'S LYMPHOMA
     Route: 042
  15. DOXORUBICIN HCL [Suspect]
     Indication: ACUTE LYMPHOCYTIC LEUKAEMIA
     Route: 042
  16. DEXAMETHASONE TAB [Suspect]
     Indication: NON-HODGKIN'S LYMPHOMA
     Route: 042
  17. DEXAMETHASONE TAB [Suspect]
     Indication: ACUTE LYMPHOCYTIC LEUKAEMIA
     Route: 042

REACTIONS (16)
  - HYPERSENSITIVITY [None]
  - OFF LABEL USE [None]
  - NEUROTOXICITY [None]
  - GRANULOCYTOPENIA [None]
  - HEPATOTOXICITY [None]
  - GASTROINTESTINAL TOXICITY [None]
  - SOFT TISSUE INFECTION [None]
  - PLATELET COUNT DECREASED [None]
  - ACUTE LYMPHOCYTIC LEUKAEMIA [None]
  - BONE MARROW FAILURE [None]
  - WHITE BLOOD CELL COUNT DECREASED [None]
  - INFECTION [None]
  - NEPHROPATHY TOXIC [None]
  - SEPSIS [None]
  - URINARY TRACT INFECTION [None]
  - ANAEMIA [None]
